FAERS Safety Report 24878925 (Version 1)
Quarter: 2025Q1

REPORT INFORMATION
  Report Type: Spontaneous
  Country: PT (occurrence: PT)
  Receive Date: 20250123
  Receipt Date: 20250123
  Transmission Date: 20250409
  Serious: Yes (Death, Hospitalization, Other)
  Sender: MYLAN
  Company Number: PT-BLGN-24-0572

PATIENT
  Age: 89 Year
  Sex: Female

DRUGS (1)
  1. AMIODARONE [Suspect]
     Active Substance: AMIODARONE
     Indication: Atrial flutter
     Dosage: 200 MILLIGRAM, QD (200 MG OF AMIODARONE DAILY)
     Route: 065

REACTIONS (1)
  - Interstitial lung disease [Fatal]
